FAERS Safety Report 9669624 (Version 4)
Quarter: 2014Q1

REPORT INFORMATION
  Report Type: Not Available
  Country: CN (occurrence: CN)
  Receive Date: 20131105
  Receipt Date: 20140131
  Transmission Date: 20141002
  Serious: Yes (Other)
  Sender: FDA-Public Use
  Company Number: CN-NAPPMUNDI-GBR-2013-0012676

PATIENT
  Age: 75 Year
  Sex: Male
  Weight: 80 kg

DRUGS (2)
  1. MORPHINE SULFATE CR TABLET [Suspect]
     Indication: CANCER PAIN
     Dosage: 40 MG, UNK
     Route: 048
     Dates: start: 20090102, end: 20090103
  2. MORPHINE SULFATE CR TABLET [Suspect]
     Dosage: UNK
     Route: 048

REACTIONS (6)
  - Cholangiectasis acquired [Recovering/Resolving]
  - Biliary dilatation [Recovering/Resolving]
  - Pyrexia [Recovering/Resolving]
  - Abdominal pain upper [Recovering/Resolving]
  - Nausea [Recovering/Resolving]
  - Vomiting [Recovering/Resolving]
